FAERS Safety Report 20247040 (Version 2)
Quarter: 2022Q2

REPORT INFORMATION
  Report Type: Spontaneous
  Country: CA (occurrence: CA)
  Receive Date: 20211229
  Receipt Date: 20220422
  Transmission Date: 20220721
  Serious: Yes (Life-Threatening, Hospitalization, Other)
  Sender: FDA-Public Use
  Company Number: CA-APOTEX-2021AP046985

PATIENT
  Age: 41 Year
  Sex: Female

DRUGS (2)
  1. GEMCITABINE [Suspect]
     Active Substance: GEMCITABINE
     Indication: Cholangiocarcinoma
     Dosage: UNK
     Route: 065
  2. CISPLATIN [Concomitant]
     Active Substance: CISPLATIN
     Indication: Cholangiocarcinoma
     Dosage: UNK
     Route: 065

REACTIONS (9)
  - Atypical haemolytic uraemic syndrome [Recovered/Resolved]
  - Off label use [Unknown]
  - Splenic infarction [Unknown]
  - Visual impairment [Unknown]
  - Product use in unapproved indication [Recovered/Resolved]
  - Blood lactate dehydrogenase increased [Unknown]
  - Hypertension [Unknown]
  - Blood creatinine increased [Unknown]
  - Thrombocytopenia [Unknown]
